FAERS Safety Report 14923729 (Version 1)
Quarter: 2018Q2

REPORT INFORMATION
  Report Type: Spontaneous
  Country: IT (occurrence: IT)
  Receive Date: 20180522
  Receipt Date: 20180522
  Transmission Date: 20180711
  Serious: Yes (Hospitalization)
  Sender: FDA-Public Use
  Company Number: IT-TEVA-2018-IT-894250

PATIENT
  Age: 89 Year
  Sex: Female

DRUGS (4)
  1. LIBRADIN 10 MG MODIFIED RELEASE CAPSULE [Concomitant]
     Route: 048
  2. RETACRIT 2 000 IU/0.6 ML SOLUTION FOR INJECTION IN PRE-FILLED SYRINGE [Concomitant]
     Route: 058
  3. LAROXYL 40 MG / ML ORAL DROPS SOLUTION [Concomitant]
     Route: 048
  4. LEVOFLOXACIN. [Suspect]
     Active Substance: LEVOFLOXACIN
     Indication: BRONCHITIS
     Dosage: 500 MILLIGRAM DAILY;
     Route: 048

REACTIONS (3)
  - Vertigo [Recovering/Resolving]
  - Gait disturbance [Recovering/Resolving]
  - Overdose [Recovering/Resolving]
